FAERS Safety Report 22318888 (Version 1)
Quarter: 2023Q2

REPORT INFORMATION
  Report Type: Spontaneous
  Country: US (occurrence: US)
  Receive Date: 20230515
  Receipt Date: 20230515
  Transmission Date: 20230722
  Serious: No
  Sender: FDA-Public Use
  Company Number: US-JNJFOC-20230512744

PATIENT
  Age: 35 Year
  Sex: Male

DRUGS (1)
  1. PEPCID AC [Suspect]
     Active Substance: FAMOTIDINE
     Indication: Dyspepsia
     Dosage: DOSE: 1 TABLET DAILY
     Route: 065
     Dates: start: 20230502

REACTIONS (1)
  - Drug ineffective [Unknown]
